FAERS Safety Report 16462604 (Version 1)
Quarter: 2019Q2

REPORT INFORMATION
  Report Type: Spontaneous
  Country: DE (occurrence: DE)
  Receive Date: 20190621
  Receipt Date: 20190621
  Transmission Date: 20190711
  Serious: Yes (Other)
  Sender: FDA-Public Use
  Company Number: DE-AUROBINDO-AUR-APL-2019-035267

PATIENT

DRUGS (8)
  1. ACETYLSALICYLIC ACID [Suspect]
     Active Substance: ASPIRIN
     Indication: ISCHAEMIC HEART DISEASE PROPHYLAXIS
     Dosage: UNK
     Route: 065
     Dates: start: 2013
  2. MONO-EMBOLEX [Suspect]
     Active Substance: CERTOPARIN SODIUM
     Dosage: 8000 DOSAGE FORM, ONCE A DAY
     Route: 065
     Dates: start: 20101001, end: 20101008
  3. MONO-EMBOLEX [Suspect]
     Active Substance: CERTOPARIN SODIUM
     Indication: PRODUCT USED FOR UNKNOWN INDICATION
     Dosage: 3000 IU
     Route: 065
  4. MONO-EMBOLEX [Suspect]
     Active Substance: CERTOPARIN SODIUM
     Dosage: 1 DOSAGE FORM, ONCE A DAY
     Route: 065
     Dates: start: 20101024, end: 20101031
  5. MONO-EMBOLEX [Suspect]
     Active Substance: CERTOPARIN SODIUM
     Dosage: 1 DOSAGE FORM, ONCE A DAY
     Route: 065
     Dates: start: 20101105, end: 20101110
  6. MONO-EMBOLEX [Suspect]
     Active Substance: CERTOPARIN SODIUM
     Dosage: UNK
     Route: 065
     Dates: start: 2013
  7. CIPROFLOXACIN. [Suspect]
     Active Substance: CIPROFLOXACIN
     Indication: PRODUCT USED FOR UNKNOWN INDICATION
     Dosage: UNK
     Route: 065
  8. PRASUGREL. [Suspect]
     Active Substance: PRASUGREL
     Indication: PRODUCT USED FOR UNKNOWN INDICATION
     Dosage: UNK
     Route: 065

REACTIONS (8)
  - Haemorrhage [Recovered/Resolved]
  - Activated partial thromboplastin time prolonged [Unknown]
  - Laboratory test abnormal [Unknown]
  - Coagulation factor V level decreased [Unknown]
  - Prothrombin time shortened [Unknown]
  - Myocardial infarction [Unknown]
  - Off label use [Unknown]
  - Thrombosis [Unknown]

NARRATIVE: CASE EVENT DATE: 2010
